FAERS Safety Report 4895078-5 (Version None)
Quarter: 2006Q1

REPORT INFORMATION
  Report Type: 
  Country: None (occurrence: None)
  Receive Date: 20060130
  Receipt Date: 20060118
  Transmission Date: 20060701
  Serious: Yes (Death)
  Sender: FDA-Public Use
  Company Number: GB-BRISTOL-MYERS SQUIBB COMPANY-13258355

PATIENT
  Age: 55 Year
  Sex: Male
  Weight: 86 kg

DRUGS (4)
  1. GLUCOPHAGE XR [Suspect]
     Route: 048
     Dates: start: 20050401
  2. ROSIGLITAZONE [Suspect]
     Route: 048
     Dates: start: 20030912
  3. ENALAPRIL [Concomitant]
     Route: 048
     Dates: start: 20010904
  4. BENDROFLUMETHIAZIDE [Concomitant]
     Route: 048
     Dates: start: 20010904

REACTIONS (1)
  - MYOCARDIAL INFARCTION [None]
